FAERS Safety Report 18579145 (Version 2)
Quarter: 2020Q4

REPORT INFORMATION
  Report Type: Spontaneous
  Country: US (occurrence: US)
  Receive Date: 20201204
  Receipt Date: 20201227
  Transmission Date: 20210114
  Serious: Yes (Other)
  Sender: FDA-Public Use
  Company Number: US-GW PHARMA-202011USGW04199

PATIENT

DRUGS (3)
  1. EPIDIOLEX [Suspect]
     Active Substance: CANNABIDIOL
     Dosage: 7.05 MG/KG/DAY, 300 MILLIGRAM, BID (NOW TAKING 3 ML DUE TO RISK OF MISSING DOSES)
     Route: 048
     Dates: start: 202011
  2. EPIDIOLEX [Suspect]
     Active Substance: CANNABIDIOL
     Dosage: 14.101 MG/KG/DAY,600 MILLIGRAM, BID (DOSE INCREASED)
     Route: 048
     Dates: start: 20201106, end: 202011
  3. EPIDIOLEX [Suspect]
     Active Substance: CANNABIDIOL
     Indication: SEVERE MYOCLONIC EPILEPSY OF INFANCY
     Dosage: UNK
     Route: 048
     Dates: start: 2019, end: 20201105

REACTIONS (4)
  - Illness [Unknown]
  - Seizure [Unknown]
  - Product prescribing issue [Unknown]
  - Incorrect dose administered [Unknown]

NARRATIVE: CASE EVENT DATE: 2020
